FAERS Safety Report 10042118 (Version 1)
Quarter: 2014Q1

REPORT INFORMATION
  Report Type: Spontaneous
  Country: AU (occurrence: None)
  Receive Date: 20140325
  Receipt Date: 20140325
  Transmission Date: 20141002
  Serious: Yes (Hospitalization, Other)
  Sender: FDA-Public Use
  Company Number: 2013000567

PATIENT
  Age: 85 Year
  Sex: Male

DRUGS (13)
  1. ACEON [Suspect]
     Indication: PRODUCT USED FOR UNKNOWN INDICATION
     Route: 048
  2. ATACAND (CANDESARTAN CILEXETIL) [Suspect]
     Indication: PRODUCT USED FOR UNKNOWN INDICATION
     Route: 048
  3. ALDACTONE (SPIRONOLACTONE) [Suspect]
     Indication: PRODUCT USED FOR UNKNOWN INDICATION
     Route: 048
  4. DIGOXIN (DIGOXIN) [Suspect]
     Indication: PRODUCT USED FOR UNKNOWN INDICATION
     Route: 048
  5. FUROSEMIDE [Concomitant]
  6. SERETIDE [Concomitant]
  7. VENTOLIN [Concomitant]
  8. SPIRIVA [Concomitant]
  9. DIAZEPAM [Concomitant]
  10. PANADEINE FORTE [Concomitant]
  11. SALBUTAMOL [Concomitant]
  12. ATROVENT [Concomitant]
  13. ALPHA KERI [Concomitant]

REACTIONS (5)
  - Toxicity to various agents [None]
  - Renal impairment [None]
  - Angioedema [None]
  - Periorbital oedema [None]
  - Hyperkalaemia [None]
